FAERS Safety Report 4604923-X (Version None)
Quarter: 2005Q1

REPORT INFORMATION
  Report Type: 
  Country: None (occurrence: None)
  Receive Date: 20050310
  Receipt Date: 20050310
  Transmission Date: 20050727
  Serious: Yes (Life-Threatening, Hospitalization, Disabling)
  Sender: FDA-Public Use
  Company Number: None

PATIENT
  Age: 36 Year
  Sex: Female
  Weight: 69.4003 kg

DRUGS (4)
  1. PLAVIX [Suspect]
     Indication: THROMBOTIC STROKE
     Dosage: 75 MG PO DAILY
     Route: 048
     Dates: start: 20040701, end: 20050301
  2. LAMOTRIGINE [Concomitant]
  3. EFFEXOR XR [Concomitant]
  4. NEURONTIN [Concomitant]

REACTIONS (2)
  - CEREBROVASCULAR ACCIDENT [None]
  - PLATELET COUNT DECREASED [None]
